FAERS Safety Report 13558253 (Version 2)
Quarter: 2017Q2

REPORT INFORMATION
  Report Type: Spontaneous
  Country: US (occurrence: US)
  Receive Date: 20170518
  Receipt Date: 20170628
  Transmission Date: 20170830
  Serious: No
  Sender: FDA-Public Use
  Company Number: US-PFIZER INC-2017213121

PATIENT
  Age: 84 Year
  Sex: Female

DRUGS (8)
  1. ULTRAM [Suspect]
     Active Substance: TRAMADOL HYDROCHLORIDE
     Indication: INFLAMMATION
  2. ULTRAM [Suspect]
     Active Substance: TRAMADOL HYDROCHLORIDE
     Indication: ANALGESIC THERAPY
     Dosage: UNK
     Route: 048
  3. MOTRIN [Suspect]
     Active Substance: IBUPROFEN
     Indication: INFLAMMATION
  4. VIOXX [Suspect]
     Active Substance: ROFECOXIB
     Indication: ANALGESIC THERAPY
     Dosage: UNK
     Route: 048
  5. MOTRIN [Suspect]
     Active Substance: IBUPROFEN
     Indication: ANALGESIC THERAPY
     Dosage: UNK
     Route: 048
  6. VIOXX [Suspect]
     Active Substance: ROFECOXIB
     Indication: INFLAMMATION
  7. ERYTHROMYCIN. [Suspect]
     Active Substance: ERYTHROMYCIN
     Dosage: UNK
     Route: 048
  8. LEXAPRO [Suspect]
     Active Substance: ESCITALOPRAM OXALATE
     Indication: DEPRESSION
     Dosage: UNK
     Route: 048

REACTIONS (2)
  - Drug hypersensitivity [Recovered/Resolved]
  - Abdominal discomfort [Recovered/Resolved]
